FAERS Safety Report 25064789 (Version 1)
Quarter: 2025Q1

REPORT INFORMATION
  Report Type: Spontaneous
  Country: US (occurrence: US)
  Receive Date: 20250311
  Receipt Date: 20250311
  Transmission Date: 20250408
  Serious: No
  Sender: BRISTOL-MYERS SQUIBB COMPANY
  Company Number: US-BRISTOL-MYERS SQUIBB COMPANY-2025-035248

PATIENT
  Age: 85 Year
  Sex: Male

DRUGS (2)
  1. THALOMID [Suspect]
     Active Substance: THALIDOMIDE
     Indication: Gastrointestinal haemorrhage
     Dates: start: 20220802
  2. THALOMID [Suspect]
     Active Substance: THALIDOMIDE

REACTIONS (2)
  - Diarrhoea [Unknown]
  - Off label use [Unknown]
